FAERS Safety Report 8535134-3 (Version None)
Quarter: 2012Q3

REPORT INFORMATION
  Report Type: 
  Country: None (occurrence: None)
  Receive Date: 20120724
  Receipt Date: 20120719
  Transmission Date: 20120928
  Serious: No
  Sender: FDA-Public Use
  Company Number: US-PFIZER INC-2012134980

PATIENT
  Sex: Male
  Weight: 95.2 kg

DRUGS (2)
  1. CHANTIX [Suspect]
     Indication: SMOKING CESSATION THERAPY
     Dosage: 0.5MG DAILY
     Route: 048
     Dates: start: 20120213, end: 20120101
  2. CHANTIX [Suspect]
     Dosage: 1 MG, 2X/DAY
     Dates: start: 20120101, end: 20120531

REACTIONS (13)
  - ANXIETY [None]
  - DEPRESSED MOOD [None]
  - FEELING OF DESPAIR [None]
  - FEELING ABNORMAL [None]
  - NICOTINE DEPENDENCE [None]
  - DRUG INTOLERANCE [None]
  - POOR QUALITY SLEEP [None]
  - PANIC REACTION [None]
  - DIARRHOEA [None]
  - DEPRESSION [None]
  - ANHEDONIA [None]
  - TENSION [None]
  - MOOD ALTERED [None]
